FAERS Safety Report 18042576 (Version 6)
Quarter: 2023Q2

REPORT INFORMATION
  Report Type: Report from Study
  Country: US (occurrence: US)
  Receive Date: 20200720
  Receipt Date: 20230602
  Transmission Date: 20230722
  Serious: Yes (Hospitalization, Other)
  Sender: FDA-Public Use
  Company Number: US-ACADIA PHARMACEUTICALS INC.-ACA-2020-PIM-002284

PATIENT
  Age: 72 Year
  Sex: Female

DRUGS (27)
  1. NUPLAZID [Suspect]
     Active Substance: PIMAVANSERIN TARTRATE
     Indication: Parkinson^s disease
     Dosage: 34 MILLIGRAM, QD
     Route: 048
     Dates: end: 20200704
  2. NUPLAZID [Suspect]
     Active Substance: PIMAVANSERIN TARTRATE
     Dosage: 34 MILLIGRAM
     Route: 048
     Dates: start: 2020
  3. PREDNISONE [Concomitant]
     Active Substance: PREDNISONE
     Indication: Product used for unknown indication
  4. CYCLOBENZAPRINE HYDROCHLORIDE [Concomitant]
     Active Substance: CYCLOBENZAPRINE HYDROCHLORIDE
     Indication: Product used for unknown indication
  5. VITAMIN D2 [Concomitant]
     Active Substance: ERGOCALCIFEROL
  6. SPIRONOLACTONE [Concomitant]
     Active Substance: SPIRONOLACTONE
  7. TORSEMIDE [Concomitant]
     Active Substance: TORSEMIDE
  8. RISA-BID [Concomitant]
  9. CALCIUM +D [CALCIUM CARBONATE;COLECALCIFEROL] [Concomitant]
  10. ZONEGRAN [Concomitant]
     Active Substance: ZONISAMIDE
  11. KEPPRA [Concomitant]
     Active Substance: LEVETIRACETAM
  12. METFORMIN [Concomitant]
     Active Substance: METFORMIN HYDROCHLORIDE
  13. DOXEPIN [Concomitant]
     Active Substance: DOXEPIN
  14. PRAVASTATIN [Concomitant]
     Active Substance: PRAVASTATIN
  15. DULOXETINE [Concomitant]
     Active Substance: DULOXETINE
  16. PREGABALIN [Concomitant]
     Active Substance: PREGABALIN
  17. AMLODIPINE [Concomitant]
     Active Substance: AMLODIPINE BESYLATE
  18. AMANTADINE [Concomitant]
     Active Substance: AMANTADINE
  19. DICYCLOMINE [Concomitant]
     Active Substance: DICYCLOMINE HYDROCHLORIDE
  20. MODAFINIL [Concomitant]
     Active Substance: MODAFINIL
  21. BREO ELLIPTA [Concomitant]
     Active Substance: FLUTICASONE FUROATE\VILANTEROL TRIFENATATE
  22. TRESIBA [Concomitant]
     Active Substance: INSULIN DEGLUDEC
  23. FLONASE [Concomitant]
     Active Substance: FLUTICASONE PROPIONATE
  24. LYRICA [Concomitant]
     Active Substance: PREGABALIN
  25. CALCIUM CARBONATE [Concomitant]
     Active Substance: CALCIUM CARBONATE
  26. SINGULAIR [Concomitant]
     Active Substance: MONTELUKAST SODIUM
  27. CENTRUM GENDER [Concomitant]

REACTIONS (13)
  - Joint injury [Unknown]
  - Limb injury [Unknown]
  - Neuropathy peripheral [Unknown]
  - Pneumonia [Recovered/Resolved]
  - COVID-19 [Recovered/Resolved]
  - Fall [Unknown]
  - Balance disorder [Unknown]
  - Diplopia [Unknown]
  - Feeding disorder [Unknown]
  - Muscle spasms [Unknown]
  - Illness [Unknown]
  - Product dose omission issue [Recovered/Resolved]
  - Fall [Unknown]

NARRATIVE: CASE EVENT DATE: 20200701
